FAERS Safety Report 18776230 (Version 1)
Quarter: 2021Q1

REPORT INFORMATION
  Report Type: Spontaneous
  Country: US (occurrence: US)
  Receive Date: 20210123
  Receipt Date: 20210123
  Transmission Date: 20210419
  Serious: Yes (Hospitalization)
  Sender: FDA-Public Use
  Company Number: US-CELGENEUS-USA-20210104571

PATIENT
  Age: 21 Year
  Sex: Male
  Weight: 69.5 kg

DRUGS (3)
  1. AZACITIDINE. [Suspect]
     Active Substance: AZACITIDINE
     Indication: OSTEOSARCOMA
     Dosage: 110 MILLIGRAM
     Route: 041
     Dates: start: 20201026, end: 20210112
  2. NIVOLUMAB [Concomitant]
     Active Substance: NIVOLUMAB
     Indication: OSTEOSARCOMA
     Dosage: 200 MILLIGRAM
     Route: 041
     Dates: start: 20201026, end: 20210104
  3. AZACITIDINE. [Suspect]
     Active Substance: AZACITIDINE
     Indication: OFF LABEL USE

REACTIONS (2)
  - Neck pain [Unknown]
  - Osteosarcoma [Unknown]

NARRATIVE: CASE EVENT DATE: 202101
